FAERS Safety Report 18649495 (Version 1)
Quarter: 2020Q4

REPORT INFORMATION
  Report Type: Spontaneous
  Country: US (occurrence: US)
  Receive Date: 20201222
  Receipt Date: 20201222
  Transmission Date: 20210114
  Serious: Yes (Life-Threatening, Hospitalization, Other)
  Sender: FDA-Public Use
  Company Number: US-PFIZER INC-2020495250

PATIENT
  Age: 33 Year
  Sex: Female

DRUGS (1)
  1. HEPARIN SODIUM. [Suspect]
     Active Substance: HEPARIN SODIUM
     Indication: HELLP SYNDROME
     Dosage: UNK, LOW MOLECULAR WEIGHT HEPARIN (DRIP)

REACTIONS (1)
  - Heparin-induced thrombocytopenia [Recovering/Resolving]
